FAERS Safety Report 18960511 (Version 1)
Quarter: 2021Q1

REPORT INFORMATION
  Report Type: Spontaneous
  Country: AR (occurrence: AR)
  Receive Date: 20210302
  Receipt Date: 20210302
  Transmission Date: 20210420
  Serious: Yes (Other)
  Sender: FDA-Public Use
  Company Number: AR-PFIZER INC-2021198394

PATIENT
  Age: 58 Year
  Sex: Female

DRUGS (1)
  1. AROMASIN [Suspect]
     Active Substance: EXEMESTANE
     Indication: BREAST CANCER METASTATIC
     Dosage: 25 MG, DAILY
     Dates: start: 20210219

REACTIONS (7)
  - Traumatic lung injury [Unknown]
  - Inflammation [Unknown]
  - Injury [Unknown]
  - Eating disorder [Unknown]
  - Liver injury [Unknown]
  - Pain [Unknown]
  - Abdominal pain [Unknown]
